FAERS Safety Report 7198616-5 (Version None)
Quarter: 2010Q4

REPORT INFORMATION
  Report Type: 
  Country: None (occurrence: None)
  Receive Date: 20101227
  Receipt Date: 20100120
  Transmission Date: 20110411
  Serious: No
  Sender: FDA-Public Use
  Company Number: US-ABBOTT-10P-163-0621502-00

PATIENT
  Sex: Male
  Weight: 77.18 kg

DRUGS (9)
  1. LUPRON DEPOT [Suspect]
     Indication: PROSTATE CANCER
     Dates: start: 20100101, end: 20100101
  2. LUPRON DEPOT [Suspect]
     Dates: start: 20090301, end: 20090301
  3. LUPRON DEPOT [Suspect]
     Dates: start: 20070101, end: 20070101
  4. LUPRON DEPOT [Suspect]
     Dates: start: 19990101, end: 19990101
  5. LUPRON DEPOT [Suspect]
     Dates: start: 19980101, end: 19980101
  6. ASPIRIN [Concomitant]
     Indication: PRODUCT USED FOR UNKNOWN INDICATION
     Dosage: 81 MG X 2
  7. METOPROLOL TARTRATE [Concomitant]
     Indication: CARDIAC DISORDER
  8. FLUDROCORTISONE ACETATE [Concomitant]
     Indication: HYPOTENSION
  9. FUROSEMIDE [Concomitant]
     Indication: PRODUCT USED FOR UNKNOWN INDICATION

REACTIONS (1)
  - PROCEDURAL COMPLICATION [None]
